FAERS Safety Report 9328161 (Version 1)
Quarter: 2013Q2

REPORT INFORMATION
  Report Type: Spontaneous
  Country: US (occurrence: US)
  Receive Date: 20130604
  Receipt Date: 20130604
  Transmission Date: 20140414
  Serious: No
  Sender: FDA-Public Use
  Company Number: US-SANOFI-AVENTIS-2012SA034534

PATIENT
  Age: 67 Year
  Sex: Female
  Weight: 58.05 kg

DRUGS (2)
  1. LANTUS [Suspect]
     Indication: TYPE 1 DIABETES MELLITUS
     Dosage: DOSE: 2 UNITS IN MORNING AND 6-9 UNITS IN EVENING, 8-10 UNITS DAILLY
     Route: 058
     Dates: start: 2007
  2. SOLOSTAR [Suspect]
     Indication: TYPE 1 DIABETES MELLITUS
     Dates: start: 2007

REACTIONS (1)
  - Laryngitis [Not Recovered/Not Resolved]
